FAERS Safety Report 4291192-6 (Version None)
Quarter: 2004Q1

REPORT INFORMATION
  Report Type: 
  Country: None (occurrence: None)
  Receive Date: 20040211
  Receipt Date: 20031110
  Transmission Date: 20041129
  Serious: No
  Sender: FDA-Public Use
  Company Number: US-GLAXOSMITHKLINE-A0439018A

PATIENT
  Age: 53 Year
  Sex: Female

DRUGS (2)
  1. PAROXETINE [Suspect]
     Indication: OBSESSIVE-COMPULSIVE DISORDER
     Dosage: 30MG PER DAY
     Route: 048
     Dates: start: 19920101
  2. MULTIVITAMIN [Concomitant]

REACTIONS (1)
  - WEIGHT INCREASED [None]
